FAERS Safety Report 7020283-1 (Version None)
Quarter: 2010Q3

REPORT INFORMATION
  Report Type: 
  Country: None (occurrence: None)
  Receive Date: 20100929
  Receipt Date: 20100920
  Transmission Date: 20110219
  Serious: Yes (Other)
  Sender: FDA-Public Use
  Company Number: EE-JNJFOC-20100906965

PATIENT
  Sex: Female
  Weight: 74 kg

DRUGS (3)
  1. DOXORUBICIN HYDROCHLORIDE [Suspect]
     Indication: MULTIPLE MYELOMA
     Route: 042
  2. VELCADE [Suspect]
     Indication: MULTIPLE MYELOMA
  3. DEXAMETHASONE [Concomitant]

REACTIONS (5)
  - ASTHENIA [None]
  - CONVULSION [None]
  - HEADACHE [None]
  - NAUSEA [None]
  - VOMITING [None]
